FAERS Safety Report 5937582-4 (Version None)
Quarter: 2008Q4

REPORT INFORMATION
  Report Type: 
  Country: None (occurrence: None)
  Receive Date: 20081031
  Receipt Date: 20081023
  Transmission Date: 20090506
  Serious: Yes (Hospitalization)
  Sender: FDA-Public Use
  Company Number: GR-ABBOTT-08P-066-0483953-00

PATIENT
  Age: 49 Year
  Sex: Female
  Weight: 88.5 kg

DRUGS (15)
  1. ZEMPLAR [Suspect]
     Indication: HYPERPARATHYROIDISM SECONDARY
     Route: 042
     Dates: start: 20080610
  2. DARBEPOETIN ALFA [Concomitant]
     Indication: DRUG USE FOR UNKNOWN INDICATION
  3. IRON [Concomitant]
     Indication: DRUG USE FOR UNKNOWN INDICATION
  4. LEVOCARNITINE [Concomitant]
     Indication: DRUG USE FOR UNKNOWN INDICATION
  5. NEUROBION [Concomitant]
     Indication: DRUG USE FOR UNKNOWN INDICATION
  6. SEVELAMER [Concomitant]
     Indication: DRUG USE FOR UNKNOWN INDICATION
  7. CALCIUM CARBONATE [Concomitant]
     Indication: DRUG USE FOR UNKNOWN INDICATION
  8. FORSENOL [Concomitant]
     Indication: DRUG USE FOR UNKNOWN INDICATION
  9. DILTIAZEM HYDROCHLORIDE [Concomitant]
     Indication: DRUG USE FOR UNKNOWN INDICATION
  10. THYRORMONE [Concomitant]
     Indication: DRUG USE FOR UNKNOWN INDICATION
  11. BREVA [Concomitant]
     Indication: DRUG USE FOR UNKNOWN INDICATION
  12. BUDESONIDE [Concomitant]
     Indication: DRUG USE FOR UNKNOWN INDICATION
  13. SALASEC [Concomitant]
     Indication: DRUG USE FOR UNKNOWN INDICATION
  14. ATORVASTATIN CALCIUM [Concomitant]
     Indication: DRUG USE FOR UNKNOWN INDICATION
  15. TOCOPHEROL CONCENTRATE CAP [Concomitant]
     Indication: DRUG USE FOR UNKNOWN INDICATION

REACTIONS (1)
  - ABDOMINAL HERNIA [None]
